FAERS Safety Report 6106447-X (Version None)
Quarter: 2009Q1

REPORT INFORMATION
  Report Type: 
  Country: None (occurrence: None)
  Receive Date: 20090306
  Receipt Date: 20090303
  Transmission Date: 20090719
  Serious: Yes (Hospitalization)
  Sender: FDA-Public Use
  Company Number: KR-SANOFI-SYNTHELABO-F01200900220

PATIENT
  Sex: Male

DRUGS (2)
  1. OXALIPLATIN [Suspect]
     Indication: METASTATIC GASTRIC CANCER
     Route: 041
     Dates: start: 20090210, end: 20090210
  2. CAPECITABINE [Suspect]
     Dosage: BID DAYS 1-15 (2 WEEKS ON TREATMENT, 1 WEEK REST)
     Route: 048
     Dates: start: 20090210, end: 20090219

REACTIONS (1)
  - APPENDICITIS [None]
